FAERS Safety Report 22280923 (Version 1)
Quarter: 2023Q2

REPORT INFORMATION
  Report Type: Spontaneous
  Country: JP (occurrence: JP)
  Receive Date: 20230503
  Receipt Date: 20230503
  Transmission Date: 20230721
  Serious: No
  Sender: FDA-Public Use
  Company Number: JP-JNJFOC-20230451724

PATIENT
  Age: 5 Decade
  Sex: Female

DRUGS (3)
  1. SIMPONI [Suspect]
     Active Substance: GOLIMUMAB
     Indication: Colitis ulcerative
     Route: 058
     Dates: start: 202109
  2. SIMPONI [Suspect]
     Active Substance: GOLIMUMAB
     Route: 058
     Dates: end: 202302
  3. IMURAN [Concomitant]
     Active Substance: AZATHIOPRINE
     Dosage: DOSE UNKNOWN
     Route: 065

REACTIONS (1)
  - KL-6 increased [Recovering/Resolving]

NARRATIVE: CASE EVENT DATE: 20230201
